FAERS Safety Report 6816773-4 (Version None)
Quarter: 2010Q3

REPORT INFORMATION
  Report Type: 
  Country: None (occurrence: None)
  Receive Date: 20100706
  Receipt Date: 20100628
  Transmission Date: 20110219
  Serious: Yes (Other)
  Sender: FDA-Public Use
  Company Number: PHHY2010US42668

PATIENT
  Sex: Female

DRUGS (3)
  1. FORADIL [Suspect]
     Indication: LUNG DISORDER
     Dosage: 2 TABLETS PER DAY
  2. OXYGEN [Concomitant]
  3. GLU NUNDE [Concomitant]

REACTIONS (4)
  - OEDEMA MOUTH [None]
  - PHARYNGEAL OEDEMA [None]
  - PRODUCT TASTE ABNORMAL [None]
  - RASH [None]
